FAERS Safety Report 4331730-8 (Version None)
Quarter: 2004Q2

REPORT INFORMATION
  Report Type: 
  Country: None (occurrence: None)
  Receive Date: 20040405
  Receipt Date: 20030429
  Transmission Date: 20050107
  Serious: No
  Sender: FDA-Public Use
  Company Number: US-GLAXOSMITHKLINE-A0406829A

PATIENT
  Sex: Female

DRUGS (5)
  1. FLOVENT [Suspect]
     Indication: ASTHMA
     Dosage: 110MCG UNKNOWN
     Route: 055
  2. SEREVENT [Suspect]
     Indication: ASTHMA
     Dosage: 21MCG UNKNOWN
     Route: 055
  3. THEOPHYLLINE SUSTAINED RELEASE [Suspect]
     Indication: ASTHMA
     Dosage: 300MG UNKNOWN
     Route: 048
  4. ALLEGRA [Suspect]
     Indication: ASTHMA
     Dosage: 60MG UNKNOWN
     Route: 048
  5. PREDNISONE [Suspect]
     Dosage: 10MG UNKNOWN
     Route: 048

REACTIONS (3)
  - FLUID RETENTION [None]
  - HYPERTENSION [None]
  - SWELLING [None]
